FAERS Safety Report 11058193 (Version 1)
Quarter: 2015Q2

REPORT INFORMATION
  Report Type: Spontaneous
  Country: US (occurrence: None)
  Receive Date: 20150421
  Receipt Date: 20150421
  Transmission Date: 20150821
  Serious: Yes (Other)
  Sender: FDA-Public Use
  Company Number: DEP_02567_2015

PATIENT
  Age: 51 Year
  Sex: Female
  Weight: 131.54 kg

DRUGS (10)
  1. LISINOPRIL. [Concomitant]
     Active Substance: LISINOPRIL
  2. LORAZEPAM. [Concomitant]
     Active Substance: LORAZEPAM
  3. GRALISE [Suspect]
     Active Substance: GABAPENTIN
     Indication: INTERVERTEBRAL DISC PROTRUSION
     Dosage: SAMPLE PACK, TITRATED UP TO 900 MG, ONCE DAILY ORAL
     Route: 048
     Dates: start: 20150227
  4. ABILIFY [Concomitant]
     Active Substance: ARIPIPRAZOLE
  5. GRALISE [Suspect]
     Active Substance: GABAPENTIN
     Indication: OFF LABEL USE
     Dosage: SAMPLE PACK, TITRATED UP TO 900 MG, ONCE DAILY ORAL
     Route: 048
     Dates: start: 20150227
  6. METFORMIN HCL [Concomitant]
     Active Substance: METFORMIN HYDROCHLORIDE
  7. VESICARE [Concomitant]
     Active Substance: SOLIFENACIN SUCCINATE
  8. CYCLOBENZAPRINE [Concomitant]
     Active Substance: CYCLOBENZAPRINE
  9. ATORVASTATIN [Concomitant]
     Active Substance: ATORVASTATIN
  10. LAMICTAL [Concomitant]
     Active Substance: LAMOTRIGINE

REACTIONS (3)
  - Insomnia [None]
  - Radiculopathy [None]
  - Dizziness [None]

NARRATIVE: CASE EVENT DATE: 20150227
